FAERS Safety Report 10207583 (Version 1)
Quarter: 2014Q2

REPORT INFORMATION
  Report Type: Spontaneous
  Country: US (occurrence: US)
  Receive Date: 20140530
  Receipt Date: 20140530
  Transmission Date: 20141212
  Serious: No
  Sender: FDA-Public Use
  Company Number: US-GLAXOSMITHKLINE-A1050663A

PATIENT
  Sex: Female

DRUGS (4)
  1. VENTOLIN HFA [Suspect]
     Indication: DYSPNOEA
     Route: 055
     Dates: start: 1994
  2. ADVAIR [Concomitant]
     Route: 055
  3. CRESTOR [Concomitant]
  4. SPIRIVA [Concomitant]

REACTIONS (5)
  - Thermal burn [Recovered/Resolved]
  - Drug ineffective [Recovered/Resolved]
  - Dysgeusia [Recovered/Resolved]
  - Drug administration error [Recovered/Resolved]
  - Product quality issue [Unknown]
